FAERS Safety Report 16047968 (Version 1)
Quarter: 2019Q1

REPORT INFORMATION
  Report Type: Spontaneous
  Country: US (occurrence: US)
  Receive Date: 20190208
  Receipt Date: 20190208
  Transmission Date: 20190418
  Serious: No
  Sender: FDA-Public Use
  Company Number: None

PATIENT
  Age: 38 Year
  Sex: Male
  Weight: 83.25 kg

DRUGS (3)
  1. XYZAL [Suspect]
     Active Substance: LEVOCETIRIZINE DIHYDROCHLORIDE
     Indication: HYPERSENSITIVITY
     Dosage: ?          QUANTITY:1 TABLET(S);?
     Route: 048
     Dates: start: 20101101, end: 20190207
  2. IBUPROFEN. [Concomitant]
     Active Substance: IBUPROFEN
  3. ZYRTEC [Suspect]
     Active Substance: CETIRIZINE HYDROCHLORIDE

REACTIONS (2)
  - Eye pruritus [None]
  - Pruritus [None]

NARRATIVE: CASE EVENT DATE: 20181001
